FAERS Safety Report 5377107-8 (Version None)
Quarter: 2007Q2

REPORT INFORMATION
  Report Type: 
  Country: None (occurrence: None)
  Receive Date: 20070628
  Receipt Date: 20070628
  Transmission Date: 20071010
  Serious: Yes (Hospitalization)
  Sender: FDA-Public Use
  Company Number: None

PATIENT
  Age: 76 Year
  Sex: Male

DRUGS (4)
  1. WARFARIN SODIUM [Suspect]
     Indication: AORTIC VALVE REPLACEMENT
     Dosage: 5MG EVERY DAY PO
     Route: 048
     Dates: start: 20040502
  2. WARFARIN SODIUM [Suspect]
     Indication: CEREBROVASCULAR ACCIDENT
     Dosage: 5MG EVERY DAY PO
     Route: 048
     Dates: start: 20040502
  3. WARFARIN SODIUM [Suspect]
     Indication: MITRAL VALVE REPLACEMENT
     Dosage: 5MG EVERY DAY PO
     Route: 048
     Dates: start: 20040502
  4. LEVOFLOXACIN [Suspect]
     Dosage: 250MG EVERY DAY PO
     Route: 048

REACTIONS (4)
  - DIARRHOEA [None]
  - DRUG TOXICITY [None]
  - INTERNATIONAL NORMALISED RATIO ABNORMAL [None]
  - URINARY TRACT INFECTION [None]
